FAERS Safety Report 5259585-8 (Version None)
Quarter: 2007Q1

REPORT INFORMATION
  Report Type: 
  Country: None (occurrence: None)
  Receive Date: 20070306
  Receipt Date: 20070227
  Transmission Date: 20070707
  Serious: Yes (Hospitalization)
  Sender: FDA-Public Use
  Company Number: 2007AL000814

PATIENT
  Age: 63 Year
  Sex: Female

DRUGS (18)
  1. MELOXICAM [Suspect]
     Indication: RHEUMATOID ARTHRITIS
     Dosage: 15 MG; QD; PO
     Route: 048
     Dates: end: 20070130
  2. ASPIRIN [Concomitant]
  3. PREDISOLONE [Concomitant]
  4. RISEDRONIC ACID [Concomitant]
  5. OMEPRAZOLE [Concomitant]
  6. GTN-S [Concomitant]
  7. ISOSORBIDE MONONITRATE [Concomitant]
  8. SALBUTAMOL [Concomitant]
  9. ALIMEMAZINE [Concomitant]
  10. CALCIUM LACTATE [Concomitant]
  11. CALCIUM CARBONATE [Concomitant]
  12. SALMETEROL [Concomitant]
  13. FLUTICASONE PROPIONATE [Concomitant]
  14. ATROVENT [Concomitant]
  15. ATORVASTATIN CALCIUM [Concomitant]
  16. DILTIAZEM [Concomitant]
  17. NICORANDIL [Concomitant]
  18. CO-CODAMOL [Concomitant]

REACTIONS (6)
  - BARRETT'S OESOPHAGUS [None]
  - CHEST PAIN [None]
  - DUODENAL ULCER [None]
  - DUODENITIS [None]
  - HELICOBACTER PYLORI IDENTIFICATION TEST POSITIVE [None]
  - VOMITING [None]
